FAERS Safety Report 8736096 (Version 3)
Quarter: 2013Q2

REPORT INFORMATION
  Report Type: Spontaneous
  Country: FR (occurrence: FR)
  Receive Date: 20120822
  Receipt Date: 20130409
  Transmission Date: 20140414
  Serious: Yes (Other)
  Sender: FDA-Public Use
  Company Number: FR-ASTELLAS-2011EU005621

PATIENT
  Sex: Female

DRUGS (2)
  1. PROGRAF [Suspect]
     Indication: RENAL TRANSPLANT
     Dosage: UNK
     Route: 065
     Dates: start: 200406
  2. PROGRAF [Suspect]
     Dosage: 6.5 MG, UNKNOWN/D
     Route: 065
     Dates: end: 20110828

REACTIONS (4)
  - Impaired gastric emptying [Not Recovered/Not Resolved]
  - Diabetic complication [Not Recovered/Not Resolved]
  - Diabetic retinopathy [Unknown]
  - Orthostatic hypotension [Unknown]
